FAERS Safety Report 9442960 (Version 1)
Quarter: 2013Q3

REPORT INFORMATION
  Report Type: Spontaneous
  Country: US (occurrence: US)
  Receive Date: 20130806
  Receipt Date: 20130806
  Transmission Date: 20140515
  Serious: Yes (Other)
  Sender: FDA-Public Use
  Company Number: US-B.I. PHARMACEUTICALS,INC./RIDGEFIELD-2013-BI-23637YA

PATIENT
  Age: 58 Year
  Sex: Male
  Weight: 86 kg

DRUGS (4)
  1. TAMSULOSIN CAPSULES [Suspect]
     Indication: PROSTATE CANCER
     Dosage: 0.4 MG
     Route: 048
     Dates: start: 2000, end: 20130724
  2. COMBIVENT [Suspect]
     Indication: ASTHMA
     Dosage: ROUTE IS RESPIRATORY,DAILY DOSE: UNK UG, OTHER
     Dates: start: 2011
  3. SYMBICORT (BUDESONIDE,FORMOTEROL FUMARTA) [Concomitant]
     Indication: ATYPICAL PNEUMONIA
     Dosage: FORMULATION: RESPIRATORY, 2PUFF TWO TIMES DAILY
     Route: 055
     Dates: start: 201303
  4. HYTRIN (TERAZOSIN HYDROCHLORIDE) [Concomitant]
     Indication: PROSTATIC DISORDER
     Dosage: 5 MG
     Route: 048
     Dates: start: 20130725

REACTIONS (8)
  - Atypical pneumonia [Recovered/Resolved]
  - Hypoaesthesia [Not Recovered/Not Resolved]
  - Blood urine present [Recovered/Resolved]
  - Hypoaesthesia [Not Recovered/Not Resolved]
  - Mouth ulceration [Not Recovered/Not Resolved]
  - Dark circles under eyes [Recovered/Resolved]
  - Erythema [Not Recovered/Not Resolved]
  - Erectile dysfunction [Recovered/Resolved]
